FAERS Safety Report 6910521-5 (Version None)
Quarter: 2010Q3

REPORT INFORMATION
  Report Type: 
  Country: None (occurrence: None)
  Receive Date: 20100806
  Receipt Date: 20100729
  Transmission Date: 20110219
  Serious: Yes (Hospitalization, Other)
  Sender: FDA-Public Use
  Company Number: PHHO2009JP12644

PATIENT
  Sex: Female
  Weight: 40 kg

DRUGS (7)
  1. RAD 666 / RAD 001A [Suspect]
     Indication: PANCREATIC NEUROENDOCRINE TUMOUR
     Dosage: 10 MG
     Route: 048
     Dates: start: 20090114, end: 20090919
  2. RAD 666 / RAD 001A [Suspect]
     Dosage: NO TREATMENT
     Dates: start: 20090920, end: 20091008
  3. RAD 666 / RAD 001A [Suspect]
     Dosage: 5 MG DAILY
     Route: 048
     Dates: start: 20091009
  4. PLACEBO COMP-PLA+ [Suspect]
     Indication: PANCREATIC NEUROENDOCRINE TUMOUR
     Dosage: PLACEBO
     Route: 048
     Dates: start: 20081028, end: 20090108
  5. SANDOSTATIN LAR [Concomitant]
  6. TAKEPRON [Concomitant]
  7. URSO 250 [Concomitant]

REACTIONS (29)
  - ABDOMINAL DISTENSION [None]
  - ABDOMINAL PAIN LOWER [None]
  - ABDOMINAL TENDERNESS [None]
  - ANXIETY [None]
  - ASCITES [None]
  - ASTHENIA [None]
  - BLOOD ALBUMIN DECREASED [None]
  - DECREASED APPETITE [None]
  - DEHYDRATION [None]
  - DIARRHOEA [None]
  - DYSPNOEA [None]
  - FACE OEDEMA [None]
  - FAECES PALE [None]
  - FLUID RETENTION [None]
  - GASTROINTESTINAL HYPERMOTILITY [None]
  - GENERAL PHYSICAL HEALTH DETERIORATION [None]
  - HAEMOGLOBIN DECREASED [None]
  - HEADACHE [None]
  - HYPERGLYCAEMIA [None]
  - MALIGNANT NEOPLASM PROGRESSION [None]
  - MALNUTRITION [None]
  - MEAN CELL VOLUME DECREASED [None]
  - METASTASES TO LIVER [None]
  - OEDEMA PERIPHERAL [None]
  - PAIN [None]
  - PLEURAL EFFUSION [None]
  - PYREXIA [None]
  - VOMITING [None]
  - WEIGHT DECREASED [None]
